FAERS Safety Report 7691968-9 (Version None)
Quarter: 2011Q3

REPORT INFORMATION
  Report Type: 
  Country: None (occurrence: None)
  Receive Date: 20110815
  Receipt Date: 20110801
  Transmission Date: 20111222
  Serious: Yes (Death, Hospitalization)
  Sender: FDA-Public Use
  Company Number: 2011MA011460

PATIENT
  Age: 57 Year
  Sex: Male

DRUGS (3)
  1. CYCLOPHOSPHAMIDE [Suspect]
     Indication: DISEASE PROGRESSION
     Dates: start: 20090201
  2. FLUDARABINE PHOSPHATE [Suspect]
     Indication: DISEASE PROGRESSION
     Dates: start: 20090201
  3. INTERFERON ALFA-2B (INTERFERON ALFA-2B) [Suspect]
     Indication: RELAPSING-REMITTING MULTIPLE SCLEROSIS
     Dosage: 44 MCG, TIW
     Dates: start: 20070709, end: 20110601

REACTIONS (8)
  - FUNGAL INFECTION [None]
  - CHRONIC LYMPHOCYTIC LEUKAEMIA [None]
  - AUTOIMMUNE PANCYTOPENIA [None]
  - DRUG INEFFECTIVE [None]
  - LOWER RESPIRATORY TRACT INFECTION [None]
  - NEOPLASM PROGRESSION [None]
  - PNEUMONIA [None]
  - INFECTION IN AN IMMUNOCOMPROMISED HOST [None]
